FAERS Safety Report 6113116-9 (Version None)
Quarter: 2009Q1

REPORT INFORMATION
  Report Type: 
  Country: None (occurrence: None)
  Receive Date: 20090312
  Receipt Date: 20090310
  Transmission Date: 20090719
  Serious: Yes (Hospitalization)
  Sender: FDA-Public Use
  Company Number: ES-MERCK-0903ESP00018

PATIENT
  Age: 36 Year
  Sex: Female

DRUGS (6)
  1. INVANZ [Suspect]
     Indication: URINARY TRACT INFECTION
     Route: 042
     Dates: start: 20080825, end: 20080101
  2. ATORVASTATIN [Concomitant]
     Indication: HYPERCHOLESTEROLAEMIA
     Route: 048
  3. ATORVASTATIN [Concomitant]
     Indication: DYSLIPIDAEMIA
     Route: 048
  4. LEVOFLOXACIN [Suspect]
     Indication: URINARY TRACT INFECTION
     Route: 065
     Dates: start: 20080825, end: 20080903
  5. EVEROLIMUS [Suspect]
     Indication: HEART TRANSPLANT
     Route: 065
     Dates: start: 20080715, end: 20080903
  6. CARVEDILOL [Concomitant]
     Indication: HYPERTENSION
     Route: 048

REACTIONS (1)
  - PNEUMONITIS [None]
